FAERS Safety Report 8207611-6 (Version None)
Quarter: 2012Q1

REPORT INFORMATION
  Report Type: 
  Country: None (occurrence: None)
  Receive Date: 20120314
  Receipt Date: 20120314
  Transmission Date: 20120608
  Serious: No
  Sender: FDA-Public Use
  Company Number: None

PATIENT
  Age: 55 Year
  Sex: Female
  Weight: 63.502 kg

DRUGS (2)
  1. SIMVASTATIN [Concomitant]
  2. LIPITOR [Suspect]

REACTIONS (1)
  - FIBROMYALGIA [None]
